FAERS Safety Report 23146744 (Version 2)
Quarter: 2023Q4

REPORT INFORMATION
  Report Type: Report from Study
  Country: US (occurrence: US)
  Receive Date: 20231105
  Receipt Date: 20231221
  Transmission Date: 20240109
  Serious: No
  Sender: FDA-Public Use
  Company Number: US-002147023-NVSC2023US235721

PATIENT
  Age: 37 Year
  Weight: 86.18 kg

DRUGS (1)
  1. COSENTYX [Suspect]
     Active Substance: SECUKINUMAB
     Indication: Autoimmune disorder
     Dosage: 150 MG/KG, QMO
     Route: 030
     Dates: start: 20190101, end: 202309

REACTIONS (2)
  - Arthropathy [Unknown]
  - Product dose omission issue [Unknown]

NARRATIVE: CASE EVENT DATE: 20231018
